FAERS Safety Report 24722190 (Version 1)
Quarter: 2024Q4

REPORT INFORMATION
  Report Type: Spontaneous
  Country: US (occurrence: None)
  Receive Date: 20241210
  Receipt Date: 20241210
  Transmission Date: 20250115
  Serious: No
  Sender: Public
  Company Number: None

PATIENT
  Age: 59 Year
  Sex: Female

DRUGS (1)
  1. CASIRIVIMAB\IMDEVIMAB [Suspect]
     Active Substance: CASIRIVIMAB\IMDEVIMAB
     Indication: COVID-19
     Dosage: 600.00 MG ONCE INTRAVENOUS?
     Route: 042
     Dates: start: 20210901, end: 20210901

REACTIONS (4)
  - Vision blurred [None]
  - Conjunctival oedema [None]
  - Eye irritation [None]
  - Visual impairment [None]

NARRATIVE: CASE EVENT DATE: 20210902
